FAERS Safety Report 11795638 (Version 1)
Quarter: 2015Q4

REPORT INFORMATION
  Report Type: Spontaneous
  Country: US (occurrence: US)
  Receive Date: 20151202
  Receipt Date: 20151202
  Transmission Date: 20160305
  Serious: Yes (Hospitalization)
  Sender: FDA-Public Use
  Company Number: GXBR2014US002499

PATIENT
  Age: 50 Year
  Sex: Female
  Weight: 58.96 kg

DRUGS (2)
  1. AMOXICILLIN AND CLAVULANATE POTASSIUM TABLETS USP [Suspect]
     Active Substance: AMOXICILLIN\CLAVULANATE POTASSIUM
     Indication: HUMAN BITE
     Dosage: AMOXICILLIN875 MG/CLAVULANATE POTASSIUM 125MG
     Route: 048
     Dates: start: 20140820, end: 20140825
  2. SYNTHROID [Concomitant]
     Active Substance: LEVOTHYROXINE SODIUM
     Indication: AUTOIMMUNE THYROIDITIS
     Dosage: 0.25 MG, QD
     Route: 048

REACTIONS (3)
  - Hepatitis toxic [Recovering/Resolving]
  - Dizziness [Recovered/Resolved]
  - Hepatic enzyme increased [Recovering/Resolving]

NARRATIVE: CASE EVENT DATE: 20140825
